FAERS Safety Report 15806263 (Version 2)
Quarter: 2019Q2

REPORT INFORMATION
  Report Type: Spontaneous
  Country: US (occurrence: US)
  Receive Date: 20190110
  Receipt Date: 20190425
  Transmission Date: 20190711
  Serious: No
  Sender: FDA-Public Use
  Company Number: US-PFIZER INC-2018400160

PATIENT
  Age: 58 Year
  Sex: Male
  Weight: 99.79 kg

DRUGS (3)
  1. LYRICA [Suspect]
     Active Substance: PREGABALIN
     Dosage: 500 MG, DAILY ((TOOK 2 (CAPSULES) IN THE MORNING, 1 AT NOON AND 2 AT NIGHT))
  2. LYRICA [Suspect]
     Active Substance: PREGABALIN
     Dosage: 500 MG, DAILY (TAKES 200MG CAPSULE, 200MG, TWICE A DAY AND THEN A 100MG, ONCE A DAY AT BEDTIME)
     Dates: start: 201811
  3. LYRICA [Suspect]
     Active Substance: PREGABALIN
     Indication: POLYNEUROPATHY
     Dosage: 100 MG, UNK, (EITHER 2 OR 3 TIMES A DAY)

REACTIONS (1)
  - Drug ineffective [Unknown]
